FAERS Safety Report 7105075-7 (Version None)
Quarter: 2010Q4

REPORT INFORMATION
  Report Type: 
  Country: None (occurrence: None)
  Receive Date: 20101116
  Receipt Date: 20101105
  Transmission Date: 20110411
  Serious: No
  Sender: FDA-Public Use
  Company Number: JP-NOVOPROD-317506

PATIENT
  Age: 47 Year
  Sex: Male
  Weight: 78 kg

DRUGS (7)
  1. VICTOZA [Suspect]
     Indication: TYPE 2 DIABETES MELLITUS
     Dosage: 0.6 MG, QD
     Route: 058
     Dates: start: 20100813
  2. VICTOZA [Suspect]
     Dosage: 0.9 UNK, UNK
     Dates: start: 20100820
  3. VICTOZA [Suspect]
     Dosage: UNK MG, QD
     Dates: start: 20100806
  4. BASEN [Concomitant]
     Dosage: 0.9 MG, QD
     Route: 048
  5. ACTOS [Concomitant]
     Dosage: 30 MG, QD
     Route: 048
  6. NU-LOTAN [Concomitant]
     Dosage: 25 MG, QD
     Route: 048
  7. LIPITOR [Concomitant]
     Dosage: 15 MG, QD
     Route: 048

REACTIONS (1)
  - HEPATIC FUNCTION ABNORMAL [None]
